FAERS Safety Report 6862115-8 (Version None)
Quarter: 2010Q3

REPORT INFORMATION
  Report Type: 
  Country: None (occurrence: None)
  Receive Date: 20100719
  Receipt Date: 20100706
  Transmission Date: 20110219
  Serious: Yes (Hospitalization, Other)
  Sender: FDA-Public Use
  Company Number: 7010291

PATIENT
  Age: 27 Year
  Sex: Female
  Weight: 179 kg

DRUGS (6)
  1. REBIF [Suspect]
     Indication: MULTIPLE SCLEROSIS
     Dosage: 44 MCG, 3 IN 1 WK, SUBCUTANEOUS
     Route: 058
     Dates: start: 20060313, end: 20090601
  2. REBIF [Suspect]
     Indication: MULTIPLE SCLEROSIS
     Dosage: 44 MCG, 3 IN 1 WK, SUBCUTANEOUS
     Route: 058
     Dates: start: 20090101
  3. KADIAN [Concomitant]
  4. LEVOTHYROXINE SODIUM [Concomitant]
  5. FLEXERIL (CYCLOBEN) [Concomitant]
  6. HYDROCODONE BITARTRATE [Concomitant]

REACTIONS (5)
  - DEPRESSION [None]
  - GALLBLADDER DISORDER [None]
  - LIVER FUNCTION TEST ABNORMAL [None]
  - NAUSEA [None]
  - VOMITING [None]
